FAERS Safety Report 9137338 (Version 1)
Quarter: 2013Q1

REPORT INFORMATION
  Report Type: Spontaneous
  Country: US (occurrence: US)
  Receive Date: 20130304
  Receipt Date: 20130304
  Transmission Date: 20140127
  Serious: No
  Sender: FDA-Public Use
  Company Number: US-TEVA-359127USA

PATIENT
  Sex: Male

DRUGS (2)
  1. TREANDA [Suspect]
     Indication: NON-HODGKIN^S LYMPHOMA
     Dosage: 90MG/M2
     Route: 042
  2. RITUXAN [Concomitant]

REACTIONS (2)
  - Dysarthria [Recovered/Resolved]
  - Disorientation [Recovered/Resolved]
